FAERS Safety Report 22027847 (Version 2)
Quarter: 2023Q1

REPORT INFORMATION
  Report Type: Spontaneous
  Country: US (occurrence: US)
  Receive Date: 20230223
  Receipt Date: 20230323
  Transmission Date: 20230418
  Serious: No
  Sender: FDA-Public Use
  Company Number: US-EXELIXIS-CABO-23060976

PATIENT
  Age: 63 Year
  Sex: Female

DRUGS (3)
  1. OPDIVO [Suspect]
     Active Substance: NIVOLUMAB
     Indication: Renal cancer
     Dosage: UNK, INFUSION
  2. CABOMETYX [Suspect]
     Active Substance: CABOZANTINIB S-MALATE
     Indication: Renal cancer
     Dosage: 40 MG, QD
     Route: 048
  3. EFFEXOR [Concomitant]
     Active Substance: VENLAFAXINE HYDROCHLORIDE
     Indication: Product used for unknown indication

REACTIONS (11)
  - Tongue discomfort [Unknown]
  - Feeding disorder [Unknown]
  - Lip dry [Unknown]
  - Thyroid hormones increased [Unknown]
  - Fatigue [Unknown]
  - Blood pressure increased [Unknown]
  - Dry mouth [Unknown]
  - Oral discomfort [Unknown]
  - Gingival discomfort [Unknown]
  - Nasal discomfort [Unknown]
  - Throat irritation [Unknown]
